FAERS Safety Report 7797599 (Version 2)
Quarter: 2014Q2

REPORT INFORMATION
  Report Type: Spontaneous
  Country: KR (occurrence: KR)
  Receive Date: 20110203
  Receipt Date: 20140623
  Transmission Date: 20141212
  Serious: Yes (Other)
  Sender: FDA-Public Use
  Company Number: KR-JNJFOC-20110107433

PATIENT
  Age: 40 Year
  Sex: Female

DRUGS (7)
  1. DOXORUBICIN HYDROCHLORIDE [Suspect]
     Indication: BREAST CANCER
     Route: 042
  2. DOXORUBICIN HYDROCHLORIDE [Suspect]
     Indication: BREAST CANCER
     Route: 042
     Dates: start: 201003, end: 201006
  3. CYCLOPHOSPHAMIDE [Suspect]
     Indication: BREAST CANCER
     Route: 065
  4. CYCLOPHOSPHAMIDE [Suspect]
     Indication: BREAST CANCER
     Route: 065
     Dates: start: 201003, end: 201006
  5. TAMOXIFEN [Suspect]
     Indication: BREAST CANCER
  6. VINCRISTINE [Suspect]
     Indication: BREAST CANCER
     Route: 065
     Dates: start: 201003, end: 201006
  7. DEXAMETHASONE [Suspect]
     Indication: BREAST CANCER
     Route: 065
     Dates: start: 201003, end: 201006

REACTIONS (1)
  - Acute leukaemia [Unknown]
